FAERS Safety Report 5862163-0 (Version None)
Quarter: 2008Q3

REPORT INFORMATION
  Report Type: 
  Country: None (occurrence: None)
  Receive Date: 20080828
  Receipt Date: 20080128
  Transmission Date: 20090109
  Serious: No
  Sender: FDA-Public Use
  Company Number: A0705589A

PATIENT

DRUGS (7)
  1. ZOVIRAX [Suspect]
     Indication: GENITAL HERPES
     Dosage: 400MG TWICE PER DAY
     Route: 048
     Dates: start: 20071101
  2. CAPROL [Concomitant]
  3. MULTI-VITAMINS [Concomitant]
  4. CALCIUM [Concomitant]
  5. MAGNESIUM SULFATE [Concomitant]
  6. ZINC [Concomitant]
  7. ASCORBIC ACID [Concomitant]

REACTIONS (3)
  - GROIN PAIN [None]
  - LYMPH NODE PAIN [None]
  - PARAESTHESIA [None]
